FAERS Safety Report 7755784-1 (Version None)
Quarter: 2011Q3

REPORT INFORMATION
  Report Type: 
  Country: None (occurrence: None)
  Receive Date: 20110916
  Receipt Date: 20110908
  Transmission Date: 20111222
  Serious: Yes (Death, Hospitalization, Other)
  Sender: FDA-Public Use
  Company Number: JP-GENZYME-THYM-1002126

PATIENT
  Sex: Female

DRUGS (3)
  1. THYMOGLOBULIN [Suspect]
     Indication: APLASTIC ANAEMIA
     Dosage: 100 MG, QD
     Route: 042
     Dates: start: 20100118, end: 20100122
  2. CYCLOSPORINE [Concomitant]
     Indication: APLASTIC ANAEMIA
     Dosage: UNK
     Route: 065
     Dates: start: 20091227
  3. NEUPOGEN [Concomitant]
     Indication: APLASTIC ANAEMIA
     Dosage: UNK
     Route: 065
     Dates: start: 20091229

REACTIONS (3)
  - PNEUMONIA [None]
  - INTERSTITIAL LUNG DISEASE [None]
  - WHITE BLOOD CELL COUNT DECREASED [None]
